FAERS Safety Report 22593113 (Version 1)
Quarter: 2023Q2

REPORT INFORMATION
  Report Type: Spontaneous
  Country: GB (occurrence: None)
  Receive Date: 20230613
  Receipt Date: 20230613
  Transmission Date: 20230721
  Serious: Yes (Congenital Anomaly, Other)
  Sender: FDA-Public Use
  Company Number: GB-MICRO LABS LIMITED-ML2023-03125

PATIENT
  Weight: 2.07 kg

DRUGS (5)
  1. CLOBAZAM [Suspect]
     Active Substance: CLOBAZAM
     Indication: Seizure
  2. ZONISAMIDE [Suspect]
     Active Substance: ZONISAMIDE
     Indication: Seizure
  3. LAMOTRIGINE [Suspect]
     Active Substance: LAMOTRIGINE
     Indication: Seizure
  4. VALPROATE [Suspect]
     Active Substance: VALPROIC ACID
     Indication: Seizure
  5. FOLIC ACID [Concomitant]
     Active Substance: FOLIC ACID
     Indication: Product used for unknown indication

REACTIONS (3)
  - Dysmorphism [Unknown]
  - Foetal anticonvulsant syndrome [Unknown]
  - Foetal exposure during pregnancy [Unknown]
